FAERS Safety Report 10866186 (Version 1)
Quarter: 2015Q1

REPORT INFORMATION
  Report Type: Spontaneous
  Country: US (occurrence: None)
  Receive Date: 20150219
  Receipt Date: 20150219
  Transmission Date: 20150721
  Serious: No
  Sender: FDA-Public Use
  Company Number: None

PATIENT
  Age: 74 Year
  Sex: Female
  Weight: 67.13 kg

DRUGS (9)
  1. GEMFIBROZIL. [Concomitant]
     Active Substance: GEMFIBROZIL
  2. SPIRULINA (GNC) [Concomitant]
  3. WOMEN^S ULTRA MEGA (GNC) [Concomitant]
  4. SIMVASTATIN. [Concomitant]
     Active Substance: SIMVASTATIN
  5. HYDROCHLOROTHIAZIDE. [Concomitant]
     Active Substance: HYDROCHLOROTHIAZIDE
  6. KELP (GNC) [Concomitant]
  7. LISINOPRIL 20 MG [Suspect]
     Active Substance: LISINOPRIL
     Indication: CARDIAC STRESS TEST
     Dosage: BY MOUTH
     Dates: start: 20150119, end: 20150129
  8. LISINOPRIL 20 MG [Suspect]
     Active Substance: LISINOPRIL
     Indication: HYPERTENSION
     Dosage: BY MOUTH
     Dates: start: 20150119, end: 20150129
  9. CARVEDILOL. [Concomitant]
     Active Substance: CARVEDILOL

REACTIONS (5)
  - Insomnia [None]
  - Depression [None]
  - Burning sensation [None]
  - Cough [None]
  - Chest pain [None]

NARRATIVE: CASE EVENT DATE: 20150119
